FAERS Safety Report 8502198-2 (Version None)
Quarter: 2012Q2

REPORT INFORMATION
  Report Type: 
  Country: None (occurrence: None)
  Receive Date: 20120629
  Receipt Date: 20120522
  Transmission Date: 20120825
  Serious: No
  Sender: FDA-Public Use
  Company Number: USA/USA/12/0024429

PATIENT
  Age: 75 Year
  Sex: Female
  Weight: 108.8633 kg

DRUGS (1)
  1. NATEGLINIDE [Suspect]
     Indication: TYPE 2 DIABETES MELLITUS
     Dosage: 60 MG, 3 IN 1 D, ORAL
     Route: 048
     Dates: start: 20120508, end: 20120510

REACTIONS (4)
  - NAUSEA [None]
  - MEMORY IMPAIRMENT [None]
  - FATIGUE [None]
  - MYALGIA [None]
